FAERS Safety Report 14001294 (Version 1)
Quarter: 2017Q3

REPORT INFORMATION
  Report Type: Spontaneous
  Country: ES (occurrence: ES)
  Receive Date: 20170922
  Receipt Date: 20170922
  Transmission Date: 20171128
  Serious: Yes (Other)
  Sender: FDA-Public Use
  Company Number: ES-MYLANLABS-2017M1058024

PATIENT
  Age: 71 Year
  Sex: Male

DRUGS (8)
  1. HALOPERIDOL. [Concomitant]
     Active Substance: HALOPERIDOL
     Route: 048
  2. LORAZEPAM. [Concomitant]
     Active Substance: LORAZEPAM
     Route: 048
  3. DULOXETINE. [Suspect]
     Active Substance: DULOXETINE
     Indication: PRODUCT USED FOR UNKNOWN INDICATION
     Dosage: UNK
     Route: 048
     Dates: start: 20170807, end: 20170808
  4. LYRICA [Concomitant]
     Active Substance: PREGABALIN
     Route: 048
  5. DICLOFENACO [Concomitant]
     Active Substance: DICLOFENAC
     Route: 048
  6. METAMIZOL [Concomitant]
     Active Substance: METAMIZOLE SODIUM
     Route: 048
  7. TARGIN [Concomitant]
     Active Substance: NALOXONE HYDROCHLORIDE\OXYCODONE HYDROCHLORIDE
     Route: 048
  8. MANID?N 2,5 MG/ML SOLUCI?N INYECTABLE [Suspect]
     Active Substance: VERAPAMIL HYDROCHLORIDE
     Indication: PEYRONIE^S DISEASE
     Route: 042
     Dates: start: 20170807

REACTIONS (4)
  - Hot flush [Recovered/Resolved]
  - Anxiety [Recovered/Resolved]
  - Nausea [Recovered/Resolved]
  - Dizziness [Recovered/Resolved]

NARRATIVE: CASE EVENT DATE: 20170808
